FAERS Safety Report 11360185 (Version 1)
Quarter: 2015Q3

REPORT INFORMATION
  Report Type: Spontaneous
  Country: IT (occurrence: IT)
  Receive Date: 20150810
  Receipt Date: 20150810
  Transmission Date: 20151125
  Serious: Yes (Death)
  Sender: FDA-Public Use
  Company Number: IT-ROCHE-1618300

PATIENT
  Age: 68 Year
  Sex: Male
  Weight: 69 kg

DRUGS (7)
  1. COPEGUS [Suspect]
     Active Substance: RIBAVIRIN
     Indication: HEPATITIS C
     Dosage: 400 MG-56 TABLETS IN HDPE BOTTLE
     Route: 048
     Dates: start: 20150522, end: 20150710
  2. SOVALDI [Suspect]
     Active Substance: SOFOSBUVIR
     Indication: HEPATITIS C
     Dosage: 400 MG - BOTTLE (HDPE) - 28 TABLETS
     Route: 048
     Dates: start: 20150522, end: 20150710
  3. OLYSIO [Suspect]
     Active Substance: SIMEPREVIR
     Indication: HEPATITIS C
     Dosage: 150 MG-BLISTER PACK (PVC/PE/PVDC/AL) -28 CAPSULES
     Route: 048
     Dates: start: 20150522, end: 20150710
  4. OLYSIO [Suspect]
     Active Substance: SIMEPREVIR
     Indication: HEPATIC CIRRHOSIS
  5. POTASSIUM CHLORIDE. [Concomitant]
     Active Substance: POTASSIUM CHLORIDE
     Dosage: 600 MG -40 TABLETS
     Route: 048
  6. INDERAL [Concomitant]
     Active Substance: PROPRANOLOL HYDROCHLORIDE
     Indication: VARICES OESOPHAGEAL
     Dosage: 40 MG TABLETS^ 30 TABLETS
     Route: 048
     Dates: start: 20140101, end: 20150710
  7. LUVION (ITALY) [Concomitant]
     Indication: HEPATIC CIRRHOSIS
     Dosage: ^50 MG TABLETS^ 40 TABLETS
     Route: 048
     Dates: start: 20140101, end: 20150710

REACTIONS (3)
  - Product use issue [Unknown]
  - Cerebral ischaemia [Fatal]
  - Cerebrovascular accident [Fatal]

NARRATIVE: CASE EVENT DATE: 20150706
